FAERS Safety Report 15489261 (Version 1)
Quarter: 2018Q4

REPORT INFORMATION
  Report Type: Spontaneous
  Country: US (occurrence: US)
  Receive Date: 20181004
  Receipt Date: 20181004
  Transmission Date: 20190205
  Serious: Yes (Hospitalization, Disabling, Other)
  Sender: FDA-Public Use
  Company Number: None

PATIENT
  Age: 32 Year
  Sex: Male
  Weight: 54 kg

DRUGS (5)
  1. PROAIR RESCUE CLICK INHALER [Concomitant]
  2. VALPROIC ACID. [Concomitant]
     Active Substance: VALPROIC ACID
  3. IBUPROFEN. [Concomitant]
     Active Substance: IBUPROFEN
  4. GABAPENTIN. [Concomitant]
     Active Substance: GABAPENTIN
  5. DOTAREM [Suspect]
     Active Substance: GADOTERATE MEGLUMINE
     Indication: SCAN WITH CONTRAST
     Dates: start: 20170314, end: 20170314

REACTIONS (6)
  - Feeling cold [None]
  - Hypoaesthesia [None]
  - Headache [None]
  - Skin burning sensation [None]
  - Anxiety [None]
  - Paraesthesia [None]

NARRATIVE: CASE EVENT DATE: 20170314
